FAERS Safety Report 25212220 (Version 1)
Quarter: 2025Q2

REPORT INFORMATION
  Report Type: Spontaneous
  Country: US (occurrence: US)
  Receive Date: 20250418
  Receipt Date: 20250418
  Transmission Date: 20250717
  Serious: Yes (Hospitalization)
  Sender: DR REDDYS
  Company Number: None

PATIENT
  Age: 39 Year
  Sex: Female

DRUGS (1)
  1. ETHINYL ESTRADIOL\ETONOGESTREL [Suspect]
     Active Substance: ETHINYL ESTRADIOL\ETONOGESTREL
     Indication: Contraception

REACTIONS (3)
  - Cerebral venous sinus thrombosis [Recovered/Resolved]
  - Pulmonary embolism [Recovered/Resolved]
  - Cerebral haemorrhage [Recovered/Resolved]
